FAERS Safety Report 16551529 (Version 1)
Quarter: 2019Q3

REPORT INFORMATION
  Report Type: Spontaneous
  Country: US (occurrence: US)
  Receive Date: 20190529
  Receipt Date: 20190529
  Transmission Date: 20191004
  Serious: No
  Sender: FDA-Public Use
  Company Number: None

PATIENT
  Age: 86 Year
  Sex: Female

DRUGS (1)
  1. FORTEO [Suspect]
     Active Substance: TERIPARATIDE
     Dates: start: 20180518

REACTIONS (7)
  - Asthenia [None]
  - Decreased appetite [None]
  - Pain [None]
  - Femur fracture [None]
  - Pelvic pain [None]
  - Headache [None]
  - Muscular weakness [None]

NARRATIVE: CASE EVENT DATE: 20190529
